FAERS Safety Report 18335376 (Version 3)
Quarter: 2021Q1

REPORT INFORMATION
  Report Type: Spontaneous
  Country: US (occurrence: US)
  Receive Date: 20201001
  Receipt Date: 20210329
  Transmission Date: 20210419
  Serious: No
  Sender: FDA-Public Use
  Company Number: US-INTRA-CELLULAR THERAPIES, INC.-2020ICT00145

PATIENT
  Age: 36 Year
  Sex: Male
  Weight: 181.41 kg

DRUGS (6)
  1. CAPLYTA [Suspect]
     Active Substance: LUMATEPERONE
     Indication: COMPULSIONS
  2. CAPLYTA [Suspect]
     Active Substance: LUMATEPERONE
     Indication: THINKING ABNORMAL
  3. CAPLYTA [Suspect]
     Active Substance: LUMATEPERONE
     Indication: THOUGHT BLOCKING
  4. CAPLYTA [Suspect]
     Active Substance: LUMATEPERONE
     Indication: PSYCHOTIC DISORDER
     Dosage: 42 MG, 1X/DAY
     Dates: start: 20200902
  5. CAPLYTA [Suspect]
     Active Substance: LUMATEPERONE
     Indication: DELUSION
  6. MULTIPLE ANTIPSYCHOTICS [Concomitant]
     Dosage: UNK
     Dates: start: 2007

REACTIONS (3)
  - Dysarthria [Recovering/Resolving]
  - Off label use [Not Recovered/Not Resolved]
  - Disinhibition [Unknown]

NARRATIVE: CASE EVENT DATE: 2020
